FAERS Safety Report 8810095 (Version 1)
Quarter: 2012Q4

REPORT INFORMATION
  Report Type: 
  Country: DE (occurrence: DE)
  Receive Date: 20120926
  Receipt Date: 20120926
  Transmission Date: 20130627
  Serious: Yes (Life-Threatening)
  Sender: FDA-Public Use
  Company Number: DE-JNJFOC-20120910874

PATIENT
  Sex: Male
  Weight: 70 kg

DRUGS (11)
  1. XARELTO [Suspect]
     Indication: ATRIAL FIBRILLATION
     Route: 048
  2. ALLOPURINOL [Concomitant]
     Indication: HYPERURICAEMIA
     Route: 048
     Dates: start: 2003
  3. NEXIUM [Concomitant]
     Indication: GASTRIC ULCER
     Route: 048
     Dates: start: 2007
  4. BISOPROLOL [Concomitant]
     Indication: ATRIAL FIBRILLATION
     Route: 048
     Dates: start: 2000
  5. PANTOPRAZOLE [Concomitant]
     Indication: GASTRIC ULCER
     Route: 048
     Dates: start: 2007
  6. KINZALKOMB [Concomitant]
     Indication: HYPERTENSION
     Dates: start: 201007, end: 201207
  7. VALPROAT [Concomitant]
     Indication: EPILEPSY
     Dates: start: 2003
  8. TAMSULOSIN [Concomitant]
     Indication: BENIGN PROSTATIC HYPERPLASIA
     Dates: start: 2011, end: 2012
  9. VIAGRA [Concomitant]
     Indication: PULMONARY HYPERTENSION
     Dates: start: 2007, end: 2012
  10. CIPROBAY [Concomitant]
     Indication: AORTIC VALVE REPLACEMENT
     Dates: start: 20120729
  11. TORASEMID [Concomitant]
     Indication: OEDEMA
     Route: 048
     Dates: start: 2009, end: 201207

REACTIONS (1)
  - Renal failure acute [Recovered/Resolved]
